FAERS Safety Report 15546766 (Version 1)
Quarter: 2018Q4

REPORT INFORMATION
  Report Type: Spontaneous
  Country: US (occurrence: US)
  Receive Date: 20181024
  Receipt Date: 20181024
  Transmission Date: 20190205
  Serious: Yes (Hospitalization)
  Sender: FDA-Public Use
  Company Number: None

PATIENT
  Age: 59 Year
  Sex: Female

DRUGS (8)
  1. ZOLPIDEM [Concomitant]
     Active Substance: ZOLPIDEM\ZOLPIDEM TARTRATE
  2. CENTRUM [Concomitant]
     Active Substance: VITAMINS
  3. ANASTROZOLE. [Concomitant]
     Active Substance: ANASTROZOLE
  4. CELEBREX [Concomitant]
     Active Substance: CELECOXIB
  5. ENBREL [Suspect]
     Active Substance: ETANERCEPT
     Indication: RHEUMATOID ARTHRITIS
     Dosage: ?          OTHER FREQUENCY:QWK;?
     Route: 058
     Dates: start: 20151219
  6. CALTRATE [Concomitant]
     Active Substance: CALCIUM CARBONATE
  7. VITAMIN D [Concomitant]
     Active Substance: CHOLECALCIFEROL
  8. FOLIC ACID. [Concomitant]
     Active Substance: FOLIC ACID

REACTIONS (2)
  - Nephrolithiasis [None]
  - Product dose omission [None]

NARRATIVE: CASE EVENT DATE: 20181016
